FAERS Safety Report 9060884 (Version 1)
Quarter: 2013Q1

REPORT INFORMATION
  Report Type: Spontaneous
  Country: BR (occurrence: BR)
  Receive Date: 20130204
  Receipt Date: 20130204
  Transmission Date: 20140127
  Serious: Yes (Hospitalization, Other)
  Sender: FDA-Public Use
  Company Number: PHHY2012BR069701

PATIENT
  Age: 51 Year
  Sex: Female

DRUGS (4)
  1. CODATEN [Suspect]
     Indication: BONE PAIN
     Dosage: 50 MG, Q8H
     Route: 048
     Dates: start: 2007
  2. CODATEN [Suspect]
     Indication: MYALGIA
     Dosage: 1 DF, Q6H
  3. CODATEN [Suspect]
     Dosage: 2 DF, Q8H
  4. DIMORF [Suspect]
     Dosage: UNK UKN, UNK

REACTIONS (4)
  - Arteritis infective [Recovering/Resolving]
  - Swelling [Recovered/Resolved]
  - Pain [Unknown]
  - Arthralgia [Recovered/Resolved]
